FAERS Safety Report 6819425-X (Version None)
Quarter: 2010Q3

REPORT INFORMATION
  Report Type: 
  Country: None (occurrence: None)
  Receive Date: 20100707
  Receipt Date: 20100623
  Transmission Date: 20110219
  Serious: No
  Sender: FDA-Public Use
  Company Number: US-B.I. PHARMACEUTICALS,INC./RIDGEFIELD-2010-BP-07162BP

PATIENT
  Sex: Male

DRUGS (2)
  1. ZANTAC 150 [Suspect]
     Route: 048
  2. MEDICATIONS NOT OTHERWISE SPECIFIED [Concomitant]

REACTIONS (2)
  - DRY EYE [None]
  - DRY MOUTH [None]
